FAERS Safety Report 5126114-9 (Version None)
Quarter: 2006Q3

REPORT INFORMATION
  Report Type: 
  Country: None (occurrence: None)
  Receive Date: 20060811
  Receipt Date: 20050721
  Transmission Date: 20061208
  Serious: Yes (Hospitalization)
  Sender: FDA-Public Use
  Company Number: 022#1#2005-00230(2)

PATIENT
  Age: 65 Year
  Sex: Male

DRUGS (3)
  1. EDEX [Suspect]
     Indication: ULTRASOUND DOPPLER
     Dosage: 20 MCG,1ONCE, INTRACAVERNOUS
     Route: 017
     Dates: start: 20050705, end: 20050705
  2. ACETYLSALICYLIC ACID SRT [Concomitant]
  3. MULTI-VITAMIN [Concomitant]

REACTIONS (1)
  - PRIAPISM [None]
